FAERS Safety Report 20838370 (Version 9)
Quarter: 2024Q1

REPORT INFORMATION
  Report Type: Other
  Country: CA (occurrence: None)
  Receive Date: 20220517
  Receipt Date: 20240131
  Transmission Date: 20240410
  Serious: Yes (Other)
  Sender: FDA-Public Use
  Company Number: CA-ROCHE-2857742

PATIENT
  Sex: Female

DRUGS (1)
  1. OCREVUS [Suspect]
     Active Substance: OCRELIZUMAB
     Indication: Relapsing-remitting multiple sclerosis
     Dosage: 300 MG AT DAY 0 AND 14, THEN 600 MG EVERY 6 MONTH?LAST INFUSION ON 12/JAN/2022
     Route: 042
     Dates: start: 20210623

REACTIONS (7)
  - Kidney infection [Not Recovered/Not Resolved]
  - Hypertonic bladder [Not Recovered/Not Resolved]
  - Balance disorder [Not Recovered/Not Resolved]
  - Urinary tract infection [Recovered/Resolved]
  - Peroneal nerve palsy [Recovering/Resolving]
  - Gait disturbance [Not Recovered/Not Resolved]
  - Escherichia urinary tract infection [Recovered/Resolved]
